FAERS Safety Report 21090259 (Version 3)
Quarter: 2022Q4

REPORT INFORMATION
  Report Type: Spontaneous
  Country: US (occurrence: US)
  Receive Date: 20220715
  Receipt Date: 20221018
  Transmission Date: 20230113
  Serious: Yes (Hospitalization, Other)
  Sender: FDA-Public Use
  Company Number: US-BRISTOL-MYERS SQUIBB COMPANY-2022-071209

PATIENT
  Age: 83 Year
  Sex: Female

DRUGS (2)
  1. REVLIMID [Suspect]
     Active Substance: LENALIDOMIDE
     Indication: Product used for unknown indication
     Dosage: TAKE 1 CAPSULE BY MOUTH EVERY DAY ON 1-21 DAYS OF EVERY 28 DAYS
     Route: 048
     Dates: start: 20130701
  2. REVLIMID [Suspect]
     Active Substance: LENALIDOMIDE
     Route: 048
     Dates: start: 20220723

REACTIONS (5)
  - Peripheral swelling [Recovering/Resolving]
  - Weight increased [Not Recovered/Not Resolved]
  - Anaemia [Not Recovered/Not Resolved]
  - Gastrointestinal haemorrhage [Unknown]
  - Blood viscosity increased [Unknown]
